FAERS Safety Report 14393976 (Version 2)
Quarter: 2018Q1

REPORT INFORMATION
  Report Type: Spontaneous
  Country: RO (occurrence: RO)
  Receive Date: 20180116
  Receipt Date: 20180131
  Transmission Date: 20180509
  Serious: Yes (Death)
  Sender: FDA-Public Use
  Company Number: RO-TEVA-2018-RO-843823

PATIENT
  Age: 33 Year
  Sex: Male

DRUGS (1)
  1. VENLAFAXINE [Suspect]
     Active Substance: VENLAFAXINE HYDROCHLORIDE
     Indication: COMPLETED SUICIDE
     Route: 065

REACTIONS (6)
  - Overdose [Fatal]
  - Completed suicide [Fatal]
  - Myocardial ischaemia [Fatal]
  - Myocardial infarction [Fatal]
  - Left ventricular dysfunction [Fatal]
  - Toxicity to various agents [Fatal]
